FAERS Safety Report 4949807-2 (Version None)
Quarter: 2006Q1

REPORT INFORMATION
  Report Type: 
  Country: None (occurrence: None)
  Receive Date: 20060315
  Receipt Date: 20060308
  Transmission Date: 20060701
  Serious: Yes (Life-Threatening, Other)
  Sender: FDA-Public Use
  Company Number: HQWYE622128APR04

PATIENT
  Age: 63 Year
  Sex: Male
  Weight: 91.8 kg

DRUGS (2)
  1. MYLOTARG [Suspect]
     Indication: ACUTE MYELOID LEUKAEMIA
     Dosage: 13 MG 1X PER 1 DAY, INTRAVENOUS
     Route: 042
     Dates: start: 20040422, end: 20040422
  2. CYTARABINE [Concomitant]

REACTIONS (8)
  - ANAPHYLACTIC REACTION [None]
  - FLUSHING [None]
  - HEART RATE INCREASED [None]
  - HYPERGLYCAEMIA [None]
  - HYPERHIDROSIS [None]
  - INFUSION RELATED REACTION [None]
  - SYNCOPE [None]
  - WHEEZING [None]
